FAERS Safety Report 5272079-9 (Version None)
Quarter: 2007Q1

REPORT INFORMATION
  Report Type: 
  Country: None (occurrence: None)
  Receive Date: 20070322
  Receipt Date: 20070319
  Transmission Date: 20070707
  Serious: Yes (Other)
  Sender: FDA-Public Use
  Company Number: GBWYE667126MAR04

PATIENT
  Sex: Male
  Weight: 81.9 kg

DRUGS (6)
  1. CYCLOSPORINE [Suspect]
     Indication: IMMUNOSUPPRESSANT DRUG THERAPY
     Route: 048
     Dates: start: 19970211, end: 20040101
  2. CYCLOSPORINE [Suspect]
     Route: 048
     Dates: start: 20040101
  3. ADALAT [Concomitant]
     Route: 048
     Dates: start: 20020501
  4. ALLOPURINOL [Concomitant]
     Route: 048
     Dates: start: 20011201
  5. FLUVASTATIN [Concomitant]
     Route: 048
     Dates: start: 19970501
  6. ASPIRIN [Concomitant]
     Route: 048
     Dates: start: 20010301

REACTIONS (2)
  - BASAL CELL CARCINOMA [None]
  - CONDITION AGGRAVATED [None]
